FAERS Safety Report 17554871 (Version 2)
Quarter: 2021Q1

REPORT INFORMATION
  Report Type: Spontaneous
  Country: US (occurrence: US)
  Receive Date: 20200318
  Receipt Date: 20210204
  Transmission Date: 20210419
  Serious: No
  Sender: FDA-Public Use
  Company Number: US-PFIZER INC-2020106296

PATIENT

DRUGS (1)
  1. TOVIAZ [Suspect]
     Active Substance: FESOTERODINE FUMARATE
     Dosage: UNK

REACTIONS (3)
  - Panic attack [Unknown]
  - Memory impairment [Unknown]
  - Learning disability [Unknown]
